APPROVED DRUG PRODUCT: CLOBETASOL PROPIONATE (EMOLLIENT)
Active Ingredient: CLOBETASOL PROPIONATE
Strength: 0.05%
Dosage Form/Route: CREAM;TOPICAL
Application: A075733 | Product #001
Applicant: ANI PHARMACEUTICALS INC
Approved: Aug 22, 2001 | RLD: No | RS: No | Type: DISCN